FAERS Safety Report 23872699 (Version 1)
Quarter: 2024Q2

REPORT INFORMATION
  Report Type: Report from Study
  Country: US (occurrence: US)
  Receive Date: 20240520
  Receipt Date: 20240520
  Transmission Date: 20240716
  Serious: Yes (Other)
  Sender: FDA-Public Use
  Company Number: US-JAZZ PHARMACEUTICALS-2024-US-007551

PATIENT
  Sex: Female
  Weight: 49.7 kg

DRUGS (4)
  1. EPIDIOLEX [Suspect]
     Active Substance: CANNABIDIOL
     Indication: Product used for unknown indication
     Dosage: 3.5 MILLILITER, TID
     Route: 048
  2. FYCOMPA [Concomitant]
     Active Substance: PERAMPANEL
  3. CLONAZEPAM [Concomitant]
     Active Substance: CLONAZEPAM
  4. MIRAPEX [Concomitant]
     Active Substance: PRAMIPEXOLE DIHYDROCHLORIDE

REACTIONS (3)
  - Generalised tonic-clonic seizure [Unknown]
  - Heart rate increased [Unknown]
  - Decreased appetite [Unknown]
